FAERS Safety Report 8510263-9 (Version None)
Quarter: 2012Q3

REPORT INFORMATION
  Report Type: 
  Country: None (occurrence: None)
  Receive Date: 20120713
  Receipt Date: 20120704
  Transmission Date: 20120928
  Serious: Yes (Death)
  Sender: FDA-Public Use
  Company Number: PT-BAXTER-2012BAX008783

PATIENT
  Age: 71 Year
  Sex: Male

DRUGS (3)
  1. EXTRANEAL [Suspect]
     Route: 033
     Dates: end: 20120618
  2. SODIUM BICARBONATE [Suspect]
     Route: 033
  3. PHYSIONEAL 40 GLUCOSE 2,27% P/V/ 22,7 MG/ML CLEAR-FLEX [Suspect]
     Route: 033
     Dates: end: 20120618

REACTIONS (2)
  - CARDIAC DISORDER [None]
  - MALAISE [None]
